FAERS Safety Report 7607960-6 (Version None)
Quarter: 2011Q3

REPORT INFORMATION
  Report Type: 
  Country: None (occurrence: None)
  Receive Date: 20110706
  Receipt Date: 20110623
  Transmission Date: 20111222
  Serious: Yes (Other)
  Sender: FDA-Public Use
  Company Number: 2011SP029423

PATIENT
  Age: 25 Year
  Sex: Female

DRUGS (5)
  1. RADIATION [Concomitant]
  2. TEMOZOLOMIDE [Suspect]
     Indication: ASTROCYTOMA
     Dosage: 75 MG/M2;QD ; 200 MG/M2
  3. TEMOZOLOMIDE [Suspect]
     Indication: OLIGODENDROGLIOMA
     Dosage: 75 MG/M2;QD ; 200 MG/M2
  4. TEMOZOLOMIDE [Suspect]
     Indication: ASTROCYTOMA
     Dosage: 75 MG/M2;QD ; 200 MG/M2
     Dates: start: 20051201
  5. TEMOZOLOMIDE [Suspect]
     Indication: OLIGODENDROGLIOMA
     Dosage: 75 MG/M2;QD ; 200 MG/M2
     Dates: start: 20051201

REACTIONS (2)
  - TRIGEMINAL NERVE PARESIS [None]
  - TRIGEMINAL NERVE DISORDER [None]
